FAERS Safety Report 21068501 (Version 2)
Quarter: 2022Q3

REPORT INFORMATION
  Report Type: Report from Study
  Country: ES (occurrence: ES)
  Receive Date: 20220712
  Receipt Date: 20220818
  Transmission Date: 20221027
  Serious: No
  Sender: FDA-Public Use
  Company Number: ES-G1 THERAPEUTICS-2022G1ES0000162

PATIENT

DRUGS (37)
  1. TRILACICLIB [Suspect]
     Active Substance: TRILACICLIB
     Indication: Myelosuppression
     Dosage: 412.8 MILLIGRAM, 240 MG/M^2 ON DAY 1 AND 2 OF EACH CYCLE
     Route: 041
     Dates: start: 20210428, end: 20210917
  2. TRILACICLIB [Suspect]
     Active Substance: TRILACICLIB
     Dosage: 412.8  MILLIGRAM, 240 MG/M^2 ON DAY 1 AND 2 OF EACH CYCLE
     Route: 041
     Dates: start: 20211007, end: 20211008
  3. TRILACICLIB [Suspect]
     Active Substance: TRILACICLIB
     Dosage: 422.4 MILLIGRAM, 240 MG/M^2 ON DAY 1 AND 2 OF EACH CYCLE
     Route: 041
     Dates: start: 20211021, end: 20211021
  4. TRILACICLIB [Suspect]
     Active Substance: TRILACICLIB
     Dosage: 412.8 MILLIGRAM, 240 MG/M^2 ON DAY 1 AND 2 OF EACH CYCLE
     Route: 041
     Dates: start: 20211022, end: 20211105
  5. TRILACICLIB [Suspect]
     Active Substance: TRILACICLIB
     Dosage: 412.8 MILLIGRAM, 240 MG/M^2 ON DAY 1 AND 2 OF EACH CYCLE
     Route: 041
     Dates: start: 20211125, end: 20211126
  6. TRILACICLIB [Suspect]
     Active Substance: TRILACICLIB
     Dosage: 412.8 MILLIGRAM, 240 MG/M^2 ON DAY 1 AND 2 OF EACH CYCLE
     Route: 041
     Dates: start: 20211216, end: 20220617
  7. TRILACICLIB [Suspect]
     Active Substance: TRILACICLIB
     Dosage: 412.8 MILLIGRAM, 240 MG/M^2 ON DAY 1 AND 2 OF EACH CYCLE
     Route: 041
     Dates: start: 20220630
  8. BEVACIZUMAB [Suspect]
     Active Substance: BEVACIZUMAB
     Indication: Colorectal cancer metastatic
     Dosage: 309.5 MILLIGRAM,   5 MG/KG DAY 1 OF EACH CYCLE
     Route: 041
     Dates: start: 20210428, end: 20210916
  9. BEVACIZUMAB [Suspect]
     Active Substance: BEVACIZUMAB
     Dosage: 309.5 MILLIGRAMS,  5 MG/KG ON DAY 1 OF EACH CYCLE
     Route: 041
     Dates: start: 20211007, end: 20211007
  10. BEVACIZUMAB [Suspect]
     Active Substance: BEVACIZUMAB
     Dosage: 327 MILLIGRAM, 5 MG/KG DAY 1 OF EACH CYCLE
     Route: 041
     Dates: start: 20211021, end: 20211021
  11. BEVACIZUMAB [Suspect]
     Active Substance: BEVACIZUMAB
     Dosage: 309.5 MILLIGRAM,  5 MG/KG  DAY 1 OF EACH CYCLE
     Route: 041
     Dates: start: 20211104, end: 20211104
  12. BEVACIZUMAB [Suspect]
     Active Substance: BEVACIZUMAB
     Dosage: 309.5 MILLIGRAM,  5 MG/KG DAY 1 OF EACH CYCLE
     Route: 041
     Dates: start: 20211125, end: 20211125
  13. BEVACIZUMAB [Suspect]
     Active Substance: BEVACIZUMAB
     Dosage: 309.5 MILLIGRAM,  5 MG/KG DAY 1 OF EACH CYCLE
     Route: 041
     Dates: start: 20211216, end: 20220616
  14. BEVACIZUMAB [Suspect]
     Active Substance: BEVACIZUMAB
     Dosage: 309.5 MILLIGRAM, 5 MG/KG DAY 1 OF EACH CYCLE
     Route: 041
     Dates: start: 20220630
  15. IRINOTECAN [Suspect]
     Active Substance: IRINOTECAN
     Indication: Colorectal cancer metastatic
     Dosage: 283.8 MILLIGRAM, 165 MG/M^2 ON DAY 1 OF EACH CYCLE
     Route: 041
     Dates: start: 20210428, end: 20210916
  16. IRINOTECAN [Suspect]
     Active Substance: IRINOTECAN
     Dosage: 283.8  MILLIGRAM, 165 MG/M^2 ON DAY 1 OF EACH CYCLE
     Route: 041
     Dates: start: 20211007, end: 20211007
  17. OXALIPLATIN [Suspect]
     Active Substance: OXALIPLATIN
     Indication: Colorectal cancer metastatic
     Dosage: 146.2 MILLIGRAM, 85 MG/M2 ON DAY 1 OF EACH CYCLE
     Route: 041
     Dates: start: 20210428, end: 20210916
  18. OXALIPLATIN [Suspect]
     Active Substance: OXALIPLATIN
     Dosage: 146.2  MILLIGRAM, 85 MG/M2 ON DAY 1 OF EACH CYCLE
     Route: 041
     Dates: start: 20211007, end: 20211007
  19. LEUCOVORIN [Suspect]
     Active Substance: LEUCOVORIN
     Indication: Colorectal cancer metastatic
     Dosage: 688  MILLIGRAM, 400 MG/M2 ON DAY 1 OF EACH CYCLE
     Route: 041
     Dates: start: 20210428, end: 20210916
  20. LEUCOVORIN [Suspect]
     Active Substance: LEUCOVORIN
     Dosage: 688 MILLIGRAM, 400 MG/M2 ON DAY 1 OF EACH CYCLE
     Route: 041
     Dates: start: 20211007, end: 20211007
  21. LEUCOVORIN [Suspect]
     Active Substance: LEUCOVORIN
     Dosage: 704 MILLIGRAM, 400 MG/M2 ON DAY 1 OF EACH CYCLE
     Route: 041
     Dates: start: 20211021, end: 20211021
  22. LEUCOVORIN [Suspect]
     Active Substance: LEUCOVORIN
     Dosage: 688 MILLIGRAM, 400 MG/M2 ON DAY 1 OF EACH CYCLE
     Route: 041
     Dates: start: 20211104, end: 20211104
  23. LEUCOVORIN [Suspect]
     Active Substance: LEUCOVORIN
     Dosage: 688 MILLIGRAM, 400 MG/M2 ON DAY 1 OF EACH CYCLE
     Route: 041
     Dates: start: 20211125, end: 20211125
  24. LEUCOVORIN [Suspect]
     Active Substance: LEUCOVORIN
     Dosage: 688 MILLIGRAM, 400 MG/M2 ON DAY 1 OF EACH CYCLE
     Route: 041
     Dates: start: 20211216, end: 20220616
  25. LEUCOVORIN [Suspect]
     Active Substance: LEUCOVORIN
     Dosage: 688 MILLIGRAM, 400 MG/M2 ON DAY 1 OF EACH CYCLE
     Route: 041
     Dates: start: 20220630
  26. FLUOROURACIL [Suspect]
     Active Substance: FLUOROURACIL
     Indication: Colorectal cancer metastatic
     Dosage: 5504 MILLIGRAM, 3200 MG/M^2 BY CONTINUOUS INFUSION OVER 48 HOURS STARTING ON DAY 1 OF EACH CYCLE
     Route: 041
     Dates: start: 20210428, end: 20210918
  27. FLUOROURACIL [Suspect]
     Active Substance: FLUOROURACIL
     Dosage: 5504  MILLIGRAM, EVERY 14 DAYS 3200 MG/M^2 BY CONTINUOUS INFUSION OVER 48 HOURS STARTING ON DAY 1 OF
     Route: 041
     Dates: start: 20211007, end: 20211009
  28. FLUOROURACIL [Suspect]
     Active Substance: FLUOROURACIL
     Dosage: 5632 MILLIGRAM,  3200 MG/M^2 BY CONTINUOUS INFUSION OVER 48 HOURS STARTING ON DAY 1 OF EACH CYCLE
     Route: 041
     Dates: start: 20211021, end: 20211023
  29. FLUOROURACIL [Suspect]
     Active Substance: FLUOROURACIL
     Dosage: 5504  MILLIGRAM, 3200 MG/M^2 BY CONTINUOUS INFUSION OVER 48 HOURS STARTING ON DAY 1 OF EACH CYCLE
     Route: 041
     Dates: start: 20211104, end: 20211106
  30. FLUOROURACIL [Suspect]
     Active Substance: FLUOROURACIL
     Dosage: 5504 MILLIGRAM, 3200 MG/M^2 BY CONTINUOUS INFUSION OVER 48 HOURS STARTING ON DAY 1 OF EACH CYCLE
     Route: 041
     Dates: start: 20211125, end: 20211127
  31. FLUOROURACIL [Suspect]
     Active Substance: FLUOROURACIL
     Dosage: 5504 MILLIGRAM, 3200 MG/M^2 BY CONTINUOUS INFUSION OVER 48 HOURS STARTING ON DAY 1 OF EACH CYCLE
     Route: 041
     Dates: start: 20211216, end: 20220618
  32. FLUOROURACIL [Suspect]
     Active Substance: FLUOROURACIL
     Dosage: 5504 MILLIGRAM, 3200 MG/M^2 BY CONTINUOUS INFUSION OVER 48 HOURS STARTING ON DAY 1 OF EACH CYCLE
     Route: 041
     Dates: start: 20220630
  33. NETUPITANT\PALONOSETRON HYDROCHLORIDE [Concomitant]
     Active Substance: NETUPITANT\PALONOSETRON HYDROCHLORIDE
     Indication: Prophylaxis of nausea and vomiting
     Dosage: 1 TABLET, ON DAY 1 OF EACH CYCLE
     Route: 048
     Dates: start: 20210428
  34. DEXAMETHASONE [Concomitant]
     Active Substance: DEXAMETHASONE
     Indication: Allergy prophylaxis
     Dosage: 12 MILLIGRAM, ON DAY 1 OF EACH CYCLE
     Route: 042
     Dates: start: 20210428
  35. ATROPINE [Concomitant]
     Active Substance: ATROPINE
     Indication: Prophylaxis
     Dosage: 0.5 MILLIGRAM, ON DAY 1 OF EACH CYCLE
     Route: 058
     Dates: start: 20210428
  36. OMEPRAZOLE [Concomitant]
     Active Substance: OMEPRAZOLE
     Indication: Hiatus hernia
     Dosage: 1 TABLET PRN
     Route: 048
     Dates: start: 1993
  37. RUSCUS [Concomitant]
     Indication: Haemorrhoids
     Dosage: 1 APPLICATION, PRN
     Route: 061
     Dates: start: 20220323

REACTIONS (1)
  - Injection site reaction [Recovered/Resolved]

NARRATIVE: CASE EVENT DATE: 20220617
